FAERS Safety Report 13291832 (Version 2)
Quarter: 2017Q2

REPORT INFORMATION
  Report Type: Spontaneous
  Country: US (occurrence: US)
  Receive Date: 20170303
  Receipt Date: 20170517
  Transmission Date: 20170830
  Serious: No
  Sender: FDA-Public Use
  Company Number: US-009507513-1702USA011243

PATIENT
  Sex: Male

DRUGS (3)
  1. DULERA [Suspect]
     Active Substance: FORMOTEROL FUMARATE DIHYDRATE\MOMETASONE FUROATE
     Dosage: UNK, BID
     Route: 055
  2. DULERA [Suspect]
     Active Substance: FORMOTEROL FUMARATE DIHYDRATE\MOMETASONE FUROATE
     Dosage: UNK, BID
     Route: 055
  3. DULERA [Suspect]
     Active Substance: FORMOTEROL FUMARATE DIHYDRATE\MOMETASONE FUROATE
     Dosage: UNK, BID
     Route: 055

REACTIONS (5)
  - Drug dose omission [Unknown]
  - No adverse event [Unknown]
  - Underdose [Unknown]
  - Product quality issue [Unknown]
  - Overdose [Unknown]
